FAERS Safety Report 25276652 (Version 3)
Quarter: 2025Q2

REPORT INFORMATION
  Report Type: Spontaneous
  Country: US (occurrence: US)
  Receive Date: 20250507
  Receipt Date: 20250624
  Transmission Date: 20250717
  Serious: No
  Sender: Haleon PLC
  Company Number: US-002147023-NVSC2023US113287

PATIENT
  Sex: Female
  Weight: 68 kg

DRUGS (6)
  1. TERBINAFINE [Suspect]
     Active Substance: TERBINAFINE
     Indication: Psoriasis
     Route: 065
  2. KETOCONAZOLE [Suspect]
     Active Substance: KETOCONAZOLE
     Indication: Psoriasis
     Route: 065
  3. CLOBETASOL [Suspect]
     Active Substance: CLOBETASOL
     Indication: Psoriasis
     Route: 065
  4. CLINDAMYCIN [Suspect]
     Active Substance: CLINDAMYCIN
     Indication: Psoriasis
     Route: 065
  5. RIFAMPIN [Suspect]
     Active Substance: RIFAMPIN
     Indication: Psoriasis
     Route: 065
  6. FLUCONAZOLE [Suspect]
     Active Substance: FLUCONAZOLE
     Indication: Psoriasis
     Route: 065

REACTIONS (4)
  - Tinea capitis [Unknown]
  - Drug ineffective [Unknown]
  - Product use in unapproved indication [Unknown]
  - Bacterial test positive [Unknown]
